FAERS Safety Report 12133735 (Version 2)
Quarter: 2016Q1

REPORT INFORMATION
  Report Type: Report from Study
  Country: IL (occurrence: IL)
  Receive Date: 20160301
  Receipt Date: 20160310
  Transmission Date: 20160526
  Serious: Yes (Hospitalization)
  Sender: FDA-Public Use
  Company Number: IL-ROCHE-1714540

PATIENT
  Age: 74 Year
  Sex: Female

DRUGS (30)
  1. GASTRO (ISRAEL) [Concomitant]
     Route: 065
     Dates: start: 20130116
  2. METAMIZOLE [Concomitant]
     Active Substance: METAMIZOLE
     Route: 065
     Dates: start: 20130403
  3. TRAMADEX [Concomitant]
     Active Substance: TRAMADOL
     Route: 065
     Dates: start: 20130501, end: 20130625
  4. LOSARTAN POTASSIUM AND HYDROCHLOROTHIAZIDE [Concomitant]
     Active Substance: HYDROCHLOROTHIAZIDE\LOSARTAN POTASSIUM
     Route: 065
     Dates: start: 200201, end: 20150110
  5. PARACETAMOL [Concomitant]
     Active Substance: ACETAMINOPHEN
     Route: 065
     Dates: start: 20130116
  6. THREOLONE [Concomitant]
     Route: 065
     Dates: start: 20130313
  7. ROKACET [Concomitant]
     Route: 065
     Dates: start: 20130207, end: 20130303
  8. AGISTEN [Concomitant]
     Route: 065
     Dates: start: 20130710
  9. CEFORAL (ISRAEL) [Concomitant]
     Route: 065
     Dates: start: 20160219, end: 20160224
  10. TAXOL [Suspect]
     Active Substance: PACLITAXEL
     Indication: HER-2 POSITIVE BREAST CANCER
     Dosage: DATE OF LAST DOSE PRIOR TO SAE-17/JUN/2013.
     Route: 042
     Dates: start: 20130116, end: 20130617
  11. ELTROXIN [Concomitant]
     Active Substance: LEVOTHYROXINE
     Route: 065
     Dates: start: 199801
  12. ROKACET [Concomitant]
     Route: 065
     Dates: start: 20121210, end: 20130107
  13. LIPITOR [Concomitant]
     Active Substance: ATORVASTATIN CALCIUM
     Route: 065
     Dates: start: 20130218
  14. TRASTUZUMAB [Suspect]
     Active Substance: TRASTUZUMAB
     Indication: HER-2 POSITIVE BREAST CANCER
     Dosage: LOADING DOSE.
     Route: 042
     Dates: start: 20130116
  15. ALLERGYX [Concomitant]
     Route: 065
     Dates: start: 20140629, end: 20140706
  16. OCSAAR PLUS [Concomitant]
     Route: 065
     Dates: start: 20150111
  17. ALLERGYX [Concomitant]
     Route: 065
     Dates: start: 20130116
  18. BRINZOLAMIDE [Concomitant]
     Active Substance: BRINZOLAMIDE
     Dosage: AS NEEDED.
     Route: 065
     Dates: start: 20130428
  19. PERTUZUMAB [Suspect]
     Active Substance: PERTUZUMAB
     Indication: HER-2 POSITIVE BREAST CANCER
     Dosage: LOADING DOSE.
     Route: 042
     Dates: start: 20130116
  20. NORVASC [Concomitant]
     Active Substance: AMLODIPINE BESYLATE
     Route: 065
     Dates: start: 200201, end: 20150110
  21. NORVASC [Concomitant]
     Active Substance: AMLODIPINE BESYLATE
     Route: 065
     Dates: start: 20150111
  22. DEXACORT (ISRAEL) [Concomitant]
     Route: 065
     Dates: start: 20130116
  23. BRONCHOLATE SYRUP (ISRAEL) [Concomitant]
     Route: 065
     Dates: start: 20140629, end: 20140706
  24. PERTUZUMAB [Suspect]
     Active Substance: PERTUZUMAB
     Dosage: MAINTANANCE DOSE.?DATE OF LAST DOSE PRIOR TO SAE-27/JAN/2016.
     Route: 042
  25. HYDROCORT (ISRAEL) [Concomitant]
     Route: 065
     Dates: start: 20130116, end: 20130116
  26. ROKACET [Concomitant]
     Route: 065
     Dates: start: 20130121, end: 20130207
  27. CEFUROXIME. [Concomitant]
     Active Substance: CEFUROXIME
     Route: 065
     Dates: start: 20140629, end: 20140706
  28. TRASTUZUMAB [Suspect]
     Active Substance: TRASTUZUMAB
     Dosage: DATE OF LAST DOSE PRIOR TO SAE-27/JAN/2016.
     Route: 042
  29. THREOLONE [Concomitant]
     Route: 065
     Dates: start: 20130204, end: 20130207
  30. ROKACET [Concomitant]
     Route: 065
     Dates: start: 20130314

REACTIONS (1)
  - Sinus node dysfunction [Recovered/Resolved]

NARRATIVE: CASE EVENT DATE: 20160217
